FAERS Safety Report 5093336-5 (Version None)
Quarter: 2006Q3

REPORT INFORMATION
  Report Type: 
  Country: None (occurrence: None)
  Receive Date: 20060830
  Receipt Date: 20060824
  Transmission Date: 20061208
  Serious: Yes (Other)
  Sender: FDA-Public Use
  Company Number: GB-MERCK-0608GBR00141

PATIENT
  Age: 5 Year
  Sex: Female
  Weight: 32 kg

DRUGS (5)
  1. SINGULAIR [Suspect]
     Indication: ASTHMA
     Route: 048
     Dates: start: 20060406, end: 20060810
  2. CEPHALEXIN [Concomitant]
     Indication: URINARY TRACT INFECTION
     Route: 048
     Dates: start: 20060516, end: 20060521
  3. PENICILLIN V [Concomitant]
     Indication: TONSILLITIS
     Route: 048
     Dates: start: 20060620, end: 20060625
  4. ALBUTEROL [Concomitant]
     Indication: ASTHMA
     Route: 055
     Dates: start: 20031224
  5. SERETIDE [Concomitant]
     Indication: ASTHMA
     Route: 055
     Dates: start: 20051220

REACTIONS (2)
  - PARTIAL SEIZURES [None]
  - PETIT MAL EPILEPSY [None]
